FAERS Safety Report 4503859-2 (Version None)
Quarter: 2004Q4

REPORT INFORMATION
  Report Type: 
  Country: None (occurrence: None)
  Receive Date: 20041117
  Receipt Date: 20041111
  Transmission Date: 20050328
  Serious: Yes (Disabling)
  Sender: FDA-Public Use
  Company Number: US-MERCK-0411USA02137

PATIENT
  Age: 54 Year
  Sex: Male

DRUGS (2)
  1. VIOXX [Suspect]
     Indication: ARTHRALGIA
     Route: 048
     Dates: start: 20040901, end: 20040901
  2. ALTACE [Concomitant]
     Route: 065

REACTIONS (5)
  - DYSURIA [None]
  - FEELING ABNORMAL [None]
  - GASTROINTESTINAL DISORDER [None]
  - OEDEMA PERIPHERAL [None]
  - PALPITATIONS [None]
